FAERS Safety Report 11508822 (Version 1)
Quarter: 2015Q3

REPORT INFORMATION
  Report Type: Spontaneous
  Country: US (occurrence: US)
  Receive Date: 20150903
  Receipt Date: 20150903
  Transmission Date: 20151125
  Serious: No
  Sender: FDA-Public Use
  Company Number: US-ELI_LILLY_AND_COMPANY-US201002000522

PATIENT
  Sex: Female

DRUGS (2)
  1. HUMALOG [Suspect]
     Active Substance: INSULIN LISPRO
     Indication: DIABETES MELLITUS
     Dosage: 9 U, UNKNOWN
  2. GLUCOPHAGE [Concomitant]
     Active Substance: METFORMIN HYDROCHLORIDE

REACTIONS (2)
  - Incorrect product storage [Unknown]
  - Wrong technique in product usage process [Not Recovered/Not Resolved]

NARRATIVE: CASE EVENT DATE: 201001
